FAERS Safety Report 10516540 (Version 1)
Quarter: 2014Q4

REPORT INFORMATION
  Report Type: Spontaneous
  Country: US (occurrence: None)
  Receive Date: 20141003
  Receipt Date: 20141003
  Transmission Date: 20150528
  Serious: Yes (Hospitalization)
  Sender: FDA-Public Use
  Company Number: 1359000

PATIENT
  Age: 33 Year
  Sex: Male

DRUGS (4)
  1. PEGASYS [Suspect]
     Active Substance: PEGINTERFERON ALFA-2A
     Indication: CHRONIC HEPATITIS C
     Dosage: THERAPY START
     Dates: start: 20140220
  2. ATIVAN [Concomitant]
     Active Substance: LORAZEPAM
  3. RIBAVIRIN. [Suspect]
     Active Substance: RIBAVIRIN
     Indication: CHRONIC HEPATITIS C
     Dosage: THERAPY START
     Dates: start: 20140220
  4. SOVALDI [Suspect]
     Active Substance: SOFOSBUVIR
     Indication: CHRONIC HEPATITIS C
     Dosage: THERAPY START
     Dates: start: 20140220

REACTIONS (12)
  - Injection site erythema [None]
  - Mood altered [None]
  - Fatigue [None]
  - Dyspnoea [None]
  - Hunger [None]
  - Nausea [None]
  - Abdominal pain [None]
  - Injection site bruising [None]
  - Dysuria [None]
  - Starvation [None]
  - Anxiety disorder [None]
  - Abdominal distension [None]

NARRATIVE: CASE EVENT DATE: 201402
